FAERS Safety Report 25272748 (Version 1)
Quarter: 2025Q2

REPORT INFORMATION
  Report Type: Spontaneous
  Country: US (occurrence: US)
  Receive Date: 20250506
  Receipt Date: 20250506
  Transmission Date: 20250717
  Serious: No
  Sender: Kenvue
  Company Number: US-KENVUE-20250500337

PATIENT
  Age: 27 Year
  Sex: Male

DRUGS (1)
  1. MENS ROGAINE EXTRA STRENGTH [Suspect]
     Active Substance: MINOXIDIL
     Indication: Alopecia
     Dosage: 2 OR 3 SPRAYS, TWICE A DAY
     Route: 061
     Dates: start: 20250421

REACTIONS (4)
  - Acne [Recovering/Resolving]
  - Application site irritation [Recovering/Resolving]
  - Skin irritation [Recovering/Resolving]
  - Incorrect dose administered [Unknown]

NARRATIVE: CASE EVENT DATE: 20250401
